FAERS Safety Report 7518849-5 (Version None)
Quarter: 2011Q2

REPORT INFORMATION
  Report Type: 
  Country: None (occurrence: None)
  Receive Date: 20110602
  Receipt Date: 20110531
  Transmission Date: 20111010
  Serious: No
  Sender: FDA-Public Use
  Company Number: US-PFIZER INC-2011117963

PATIENT
  Sex: Female
  Weight: 59.864 kg

DRUGS (1)
  1. ALPRAZOLAM [Suspect]
     Indication: ANXIETY
     Dosage: 0.5 MG, AS NEEDED
     Route: 048

REACTIONS (4)
  - VOMITING [None]
  - ABDOMINAL DISCOMFORT [None]
  - SKIN IRRITATION [None]
  - NAUSEA [None]
